FAERS Safety Report 10914060 (Version 1)
Quarter: 2015Q1

REPORT INFORMATION
  Report Type: Spontaneous
  Country: US (occurrence: US)
  Receive Date: 20150313
  Receipt Date: 20150313
  Transmission Date: 20150721
  Serious: No
  Sender: FDA-Public Use
  Company Number: US-ASTRAZENECA-2014SE69188

PATIENT
  Age: 793 Month
  Sex: Female
  Weight: 111.6 kg

DRUGS (6)
  1. GABAPENTIN. [Concomitant]
     Active Substance: GABAPENTIN
  2. LISINOPRIL. [Suspect]
     Active Substance: LISINOPRIL
     Route: 065
  3. TRAMADOL [Concomitant]
     Active Substance: TRAMADOL
  4. MYALEPT [Suspect]
     Active Substance: METRELEPTIN
     Indication: LIPODYSTROPHY ACQUIRED
     Route: 058
     Dates: start: 20140903
  5. MYALEPT [Suspect]
     Active Substance: METRELEPTIN
     Indication: WEIGHT INCREASED
     Route: 058
     Dates: start: 20140903
  6. INSULIN [Concomitant]
     Active Substance: INSULIN NOS

REACTIONS (9)
  - Erythema [Unknown]
  - Back pain [Not Recovered/Not Resolved]
  - Neck pain [Recovering/Resolving]
  - Nausea [Unknown]
  - Chest pain [Recovering/Resolving]
  - Coordination abnormal [Unknown]
  - Feeling hot [Unknown]
  - Off label use [Unknown]
  - Heart rate increased [Not Recovered/Not Resolved]

NARRATIVE: CASE EVENT DATE: 20140904
